FAERS Safety Report 14869239 (Version 1)
Quarter: 2018Q2

REPORT INFORMATION
  Report Type: Other
  Country: FR (occurrence: FR)
  Receive Date: 20180509
  Receipt Date: 20180509
  Transmission Date: 20180711
  Serious: Yes (Hospitalization)
  Sender: FDA-Public Use
  Company Number: FR-MACLEODS PHARMACEUTICALS US LTD-MAC2018012999

PATIENT

DRUGS (11)
  1. PARACETAMOL [Suspect]
     Active Substance: ACETAMINOPHEN
     Indication: PAIN
     Dosage: 3000 MILLIGRAM, (2-2-2)
     Route: 048
     Dates: start: 20180412
  2. LOVENOX [Suspect]
     Active Substance: ENOXAPARIN SODIUM
     Indication: ANTICOAGULANT THERAPY
     Dosage: 4000 INTERNATIONAL UNIT, QD
     Route: 058
     Dates: start: 20180409, end: 20180416
  3. TEGRETOL [Suspect]
     Active Substance: CARBAMAZEPINE
     Indication: NEURALGIA
     Dosage: UNK (UNSPECIFIED)
     Route: 048
     Dates: start: 20180403, end: 20180410
  4. MORPHINE [Suspect]
     Active Substance: MORPHINE
     Indication: PAIN
     Dosage: 40 MILLIGRAM, QD
     Route: 042
     Dates: start: 20180406
  5. NEURONTIN [Suspect]
     Active Substance: GABAPENTIN
     Indication: NEURALGIA
     Dosage: 600 MILLIGRAM, QD (1-0-1)
     Route: 048
     Dates: start: 20180406
  6. PANTOPRAZOLE [Suspect]
     Active Substance: PANTOPRAZOLE
     Indication: GASTROOESOPHAGEAL REFLUX DISEASE
     Dosage: 40 MILLIGRAM, QD (0-0-1)
     Route: 048
     Dates: start: 20180406
  7. MACROGOL 3350 [Suspect]
     Active Substance: POLYETHYLENE GLYCOL 3350
     Indication: CONSTIPATION
     Dosage: 2 DOSAGE FORM, QD (1-1-0)
     Route: 048
     Dates: start: 20180410
  8. LAROXYL [Suspect]
     Active Substance: AMITRIPTYLINE HYDROCHLORIDE
     Indication: PAIN
     Dosage: 10 DROP, QD (10 DROPS AT NIGHT)
     Route: 048
     Dates: start: 20180406
  9. ZOPICLONE [Suspect]
     Active Substance: ZOPICLONE
     Indication: INSOMNIA
     Dosage: 7.5 MILLIGRAM, QD (0-0-1)
     Route: 048
     Dates: start: 20180412, end: 20180414
  10. ALPRAZOLAM. [Suspect]
     Active Substance: ALPRAZOLAM
     Indication: ANXIETY
     Dosage: 1 DOSAGE FORM, QD (1 CP IF NEEDED)
     Route: 048
     Dates: start: 20180412
  11. SOLU-MEDROL [Suspect]
     Active Substance: METHYLPREDNISOLONE SODIUM SUCCINATE
     Indication: ADRENAL INSUFFICIENCY
     Dosage: 60 MILLIGRAM, QD
     Route: 042
     Dates: start: 20180329, end: 20180415

REACTIONS (1)
  - Rash maculo-papular [Recovering/Resolving]

NARRATIVE: CASE EVENT DATE: 20180413
